FAERS Safety Report 6106976-9 (Version None)
Quarter: 2009Q1

REPORT INFORMATION
  Report Type: 
  Country: None (occurrence: None)
  Receive Date: 20090309
  Receipt Date: 20090225
  Transmission Date: 20090719
  Serious: Yes (Hospitalization, Other)
  Sender: FDA-Public Use
  Company Number: RS-JNJFOC-20090204747

PATIENT
  Age: 8 Year
  Sex: Female

DRUGS (4)
  1. TOPAMAX [Suspect]
     Indication: PARTIAL SEIZURES
     Route: 048
  2. LAMICTAL [Concomitant]
     Indication: EPILEPSY
  3. VALPROIC ACID [Concomitant]
     Indication: EPILEPSY
  4. FRISIUM [Concomitant]
     Indication: EPILEPSY

REACTIONS (3)
  - AMMONIA INCREASED [None]
  - CONDITION AGGRAVATED [None]
  - ENCEPHALOPATHY [None]
